FAERS Safety Report 5874888-1 (Version None)
Quarter: 2008Q3

REPORT INFORMATION
  Report Type: 
  Country: None (occurrence: None)
  Receive Date: 20080904
  Receipt Date: 20080829
  Transmission Date: 20090109
  Serious: Yes (Death)
  Sender: FDA-Public Use
  Company Number: 2007SP003243

PATIENT
  Age: 67 Year
  Sex: Male
  Weight: 75 kg

DRUGS (13)
  1. LONAFARNIB (S-P) (LONAFARNIB) [Suspect]
     Indication: GLIOMA
     Dosage: 175 MG; BID, 175 MG; BID
     Dates: start: 20070112, end: 20070112
  2. LONAFARNIB (S-P) (LONAFARNIB) [Suspect]
     Indication: GLIOMA
     Dosage: 175 MG; BID, 175 MG; BID
     Dates: start: 20070213, end: 20070213
  3. LONAFARNIB (S-P) (LONAFARNIB) [Suspect]
     Indication: GLIOMA
     Dosage: 175 MG; BID, 175 MG; BID
     Dates: start: 20061228
  4. TEMOZOLOMIDE [Suspect]
     Indication: GLIOMA
     Dosage: 150 MG; QD; PO, 150 MG; QD; PO, 150 MG; QD; PO
     Route: 048
     Dates: start: 20070112, end: 20070112
  5. TEMOZOLOMIDE [Suspect]
     Indication: GLIOMA
     Dosage: 150 MG; QD; PO, 150 MG; QD; PO, 150 MG; QD; PO
     Route: 048
     Dates: start: 20070213, end: 20070213
  6. TEMOZOLOMIDE [Suspect]
     Indication: GLIOMA
     Dosage: 150 MG; QD; PO, 150 MG; QD; PO, 150 MG; QD; PO
     Route: 048
     Dates: start: 20061228
  7. MOPRAL [Concomitant]
  8. SOLUPRED [Concomitant]
  9. DETENSIEL [Concomitant]
  10. STILNOX [Concomitant]
  11. ZOPHREN [Concomitant]
  12. MICROPAKINE [Concomitant]
  13. DAFALGAN [Concomitant]

REACTIONS (4)
  - BALANCE DISORDER [None]
  - HAEMOGLOBIN DECREASED [None]
  - SEPTIC SHOCK [None]
  - WEIGHT DECREASED [None]
